FAERS Safety Report 8942867 (Version 1)
Quarter: 2012Q4

REPORT INFORMATION
  Report Type: Spontaneous
  Country: KR (occurrence: None)
  Receive Date: 20121123
  Receipt Date: 20121123
  Transmission Date: 20130627
  Serious: Yes (Other)
  Sender: FDA-Public Use
  Company Number: 2012P1064914

PATIENT
  Age: 60 Year
  Sex: Female

DRUGS (2)
  1. METRONIDAZOLE (NO PREF. NAME) [Suspect]
     Indication: BRAIN ABSCESS
     Route: 042
  2. METRONIDAZOLE (NO PREF. NAME) [Suspect]
     Indication: BRAIN ABSCESS

REACTIONS (5)
  - Toxic encephalopathy [None]
  - Neutropenia [None]
  - Depression [None]
  - Nervousness [None]
  - Hemiparesis [None]
